FAERS Safety Report 5608253-9 (Version None)
Quarter: 2008Q1

REPORT INFORMATION
  Report Type: 
  Country: None (occurrence: None)
  Receive Date: 20080111
  Receipt Date: 20071005
  Transmission Date: 20080703
  Serious: Yes (Other)
  Sender: FDA-Public Use
  Company Number: HQWYE092409AUG04

PATIENT
  Age: 57 Year
  Sex: Female
  Weight: 59.02 kg

DRUGS (2)
  1. PREMPRO [Suspect]
  2. PREMARIN [Suspect]

REACTIONS (2)
  - DEMENTIA [None]
  - UTERINE LEIOMYOMA [None]
